FAERS Safety Report 5026517-7 (Version None)
Quarter: 2006Q2

REPORT INFORMATION
  Report Type: 
  Country: None (occurrence: None)
  Receive Date: 20060615
  Receipt Date: 20060324
  Transmission Date: 20061013
  Serious: Yes (Hospitalization)
  Sender: FDA-Public Use
  Company Number: PHNU2006DE01452

PATIENT
  Sex: Male
  Weight: 75 kg

DRUGS (3)
  1. SANDIMMUNE [Suspect]
     Indication: LIVER TRANSPLANT
     Dosage: 120 MG, BID
     Route: 048
  2. METOPROLOL SUCCINATE [Concomitant]
     Dosage: 23.75 MG, BID
  3. DELIX [Concomitant]
     Dosage: 2.5MG/DAY

REACTIONS (3)
  - DELUSION [None]
  - PARANOIA [None]
  - PSYCHOTIC DISORDER [None]
